FAERS Safety Report 6002200-6 (Version None)
Quarter: 2008Q4

REPORT INFORMATION
  Report Type: 
  Country: None (occurrence: None)
  Receive Date: 20081212
  Receipt Date: 20081203
  Transmission Date: 20090506
  Serious: Yes (Congenital Anomaly)
  Sender: FDA-Public Use
  Company Number: 2008AP001649

PATIENT
  Sex: Female

DRUGS (1)
  1. PAROXETINE HYDROCHLORIDE [Suspect]
     Dosage: TRPL
     Route: 064
     Dates: start: 20020101

REACTIONS (2)
  - MATERNAL DRUGS AFFECTING FOETUS [None]
  - TRANSPOSITION OF THE GREAT VESSELS [None]
